FAERS Safety Report 25879456 (Version 1)
Quarter: 2025Q4

REPORT INFORMATION
  Report Type: Spontaneous
  Country: US (occurrence: US)
  Receive Date: 20251003
  Receipt Date: 20251003
  Transmission Date: 20260118
  Serious: Yes (Other)
  Sender: UCB
  Company Number: US-UCBSA-2025061191

PATIENT
  Sex: Male
  Weight: 115.21 kg

DRUGS (3)
  1. BIMZELX [Suspect]
     Active Substance: BIMEKIZUMAB-BKZX
     Indication: Illness
     Dosage: 320 MILLIGRAM, EV 4 WEEKS
     Route: 058
  2. THERA-M [Concomitant]
     Indication: Product used for unknown indication
     Dosage: 27MG-0.4MG
  3. METHOTREXATE [Concomitant]
     Active Substance: METHOTREXATE
     Indication: Product used for unknown indication
     Dosage: 2.5 MG/0.5 PEN INJCTR

REACTIONS (3)
  - Limb injury [Unknown]
  - Product availability issue [Unknown]
  - Therapy interrupted [Unknown]
